FAERS Safety Report 17883892 (Version 1)
Quarter: 2020Q2

REPORT INFORMATION
  Report Type: Spontaneous
  Country: DE (occurrence: DE)
  Receive Date: 20200611
  Receipt Date: 20200611
  Transmission Date: 20200714
  Serious: Yes (Other)
  Sender: FDA-Public Use
  Company Number: DE-DEXPHARM-20200464

PATIENT
  Sex: Female

DRUGS (1)
  1. PERIOCHIP [Suspect]
     Active Substance: CHLORHEXIDINE GLUCONATE
     Indication: PERIODONTITIS
     Route: 004

REACTIONS (1)
  - Application site necrosis [Recovered/Resolved]
